APPROVED DRUG PRODUCT: ASPIRIN AND DIPYRIDAMOLE
Active Ingredient: ASPIRIN; DIPYRIDAMOLE
Strength: 25MG;200MG
Dosage Form/Route: CAPSULE, EXTENDED RELEASE;ORAL
Application: A204552 | Product #001
Applicant: CHARTWELL MOLECULAR HOLDINGS LLC
Approved: Mar 20, 2019 | RLD: No | RS: No | Type: DISCN